FAERS Safety Report 21379112 (Version 1)
Quarter: 2022Q3

REPORT INFORMATION
  Report Type: Spontaneous
  Country: US (occurrence: US)
  Receive Date: 20220927
  Receipt Date: 20220927
  Transmission Date: 20221027
  Serious: No
  Sender: FDA-Public Use
  Company Number: US-AUROBINDO-AUR-APL-2022-017426

PATIENT
  Sex: Female
  Weight: 89.8 kg

DRUGS (1)
  1. CARISOPRODOL [Suspect]
     Active Substance: CARISOPRODOL
     Indication: Pain
     Dosage: 350 MILLIGRAM, AS NECESSARY
     Route: 065
     Dates: start: 202204

REACTIONS (2)
  - Drug ineffective [Unknown]
  - Extra dose administered [Unknown]
